FAERS Safety Report 14288354 (Version 1)
Quarter: 2017Q4

REPORT INFORMATION
  Report Type: Spontaneous
  Country: US (occurrence: US)
  Receive Date: 20171215
  Receipt Date: 20171215
  Transmission Date: 20180321
  Serious: No
  Sender: FDA-Public Use
  Company Number: US-TEVA-812887ACC

PATIENT
  Age: 61 Year
  Sex: Female
  Weight: 74.83 kg

DRUGS (3)
  1. MUCUS ER [Suspect]
     Active Substance: GUAIFENESIN
     Indication: INCREASED UPPER AIRWAY SECRETION
     Dosage: SINGLE
     Route: 048
     Dates: start: 20170923, end: 20170923
  2. VITAMINS [Concomitant]
     Active Substance: VITAMINS
  3. EXCEDRIN [Concomitant]
     Active Substance: ACETAMINOPHEN\ASPIRIN\CAFFEINE

REACTIONS (8)
  - Hypersensitivity [Recovering/Resolving]
  - Swelling [Recovering/Resolving]
  - Pruritus generalised [Recovered/Resolved]
  - Pain [Recovered/Resolved]
  - Urticaria [Recovered/Resolved]
  - Rash generalised [Recovered/Resolved]
  - Musculoskeletal stiffness [Recovering/Resolving]
  - Gait disturbance [Recovered/Resolved]

NARRATIVE: CASE EVENT DATE: 20170923
